FAERS Safety Report 5606296-2 (Version None)
Quarter: 2008Q1

REPORT INFORMATION
  Report Type: 
  Country: None (occurrence: None)
  Receive Date: 20080129
  Receipt Date: 20070510
  Transmission Date: 20080703
  Serious: No
  Sender: FDA-Public Use
  Company Number: A0650836A

PATIENT
  Age: 57 Year
  Sex: Female

DRUGS (1)
  1. WELLBUTRIN [Suspect]
     Dosage: 150MG UNKNOWN
     Route: 048
     Dates: start: 20070401

REACTIONS (1)
  - METANEPHRINE URINE INCREASED [None]
